FAERS Safety Report 4574959-6 (Version None)
Quarter: 2005Q1

REPORT INFORMATION
  Report Type: 
  Country: None (occurrence: None)
  Receive Date: 20050208
  Receipt Date: 20041221
  Transmission Date: 20050727
  Serious: Yes (Other)
  Sender: FDA-Public Use
  Company Number: US-MERCK-0412USA02538

PATIENT
  Sex: Male

DRUGS (1)
  1. GAMMAGEE [Suspect]
     Indication: PROPHYLAXIS

REACTIONS (5)
  - AUTISM [None]
  - DEVELOPMENTAL DELAY [None]
  - DIARRHOEA [None]
  - EAR INFECTION [None]
  - NEONATAL ASPIRATION [None]
